FAERS Safety Report 4766524-2 (Version None)
Quarter: 2005Q3

REPORT INFORMATION
  Report Type: 
  Country: None (occurrence: None)
  Receive Date: 20050909
  Receipt Date: 20050831
  Transmission Date: 20060218
  Serious: Yes (Hospitalization)
  Sender: FDA-Public Use
  Company Number: 2005122288

PATIENT
  Age: 26 Year
  Sex: Female

DRUGS (3)
  1. VIRACEPT [Suspect]
     Indication: ACQUIRED IMMUNODEFICIENCY SYNDROME
     Dosage: 250 MG (250 MG, QD), ORAL
     Route: 048
     Dates: start: 20040612, end: 20050612
  2. VIDEX [Suspect]
     Indication: ACQUIRED IMMUNODEFICIENCY SYNDROME
     Dosage: 250 MG (250 MG, QD), ORAL
     Route: 048
     Dates: start: 20040612, end: 20050612
  3. EPIVIR [Suspect]
     Indication: ACQUIRED IMMUNODEFICIENCY SYNDROME
     Dosage: 300 MG (300 MG, QD), ORAL
     Route: 048
     Dates: start: 20040612, end: 20050612

REACTIONS (1)
  - DERMATITIS BULLOUS [None]
